FAERS Safety Report 5550983-1 (Version None)
Quarter: 2007Q4

REPORT INFORMATION
  Report Type: 
  Country: None (occurrence: None)
  Receive Date: 20071210
  Receipt Date: 20071204
  Transmission Date: 20080405
  Serious: Yes (Hospitalization)
  Sender: FDA-Public Use
  Company Number: 144-C5013-07120113

PATIENT
  Age: 74 Year
  Sex: Female

DRUGS (1)
  1. CC-5013 (LENALIDOMIDE) (CAPSULES) [Suspect]
     Indication: MULTIPLE MYELOMA
     Dosage: 10 MG, X 21 DAYS, ORAL
     Route: 048
     Dates: start: 20071015, end: 20071020

REACTIONS (2)
  - METABOLIC ENCEPHALOPATHY [None]
  - MYOCLONUS [None]
